FAERS Safety Report 4489647-4 (Version None)
Quarter: 2004Q4

REPORT INFORMATION
  Report Type: 
  Country: None (occurrence: None)
  Receive Date: 20041101
  Receipt Date: 20041014
  Transmission Date: 20050328
  Serious: Yes (Hospitalization)
  Sender: FDA-Public Use
  Company Number: PHBS2004JP13694

PATIENT
  Age: 38 Year
  Sex: Male

DRUGS (3)
  1. CARBAMAZEPINE [Suspect]
     Indication: EPILEPSY
     Dosage: 200 MG/DAY
  2. CLONAZEPAM [Suspect]
     Dosage: 2 MG/DAY
  3. VALPROATE SODIUM [Concomitant]
     Dosage: 1200 MG/DAY

REACTIONS (12)
  - BLOOD CREATINE PHOSPHOKINASE INCREASED [None]
  - CATATONIA [None]
  - DELIRIUM [None]
  - DRUG WITHDRAWAL SYNDROME [None]
  - EXCITABILITY [None]
  - HALLUCINATION, AUDITORY [None]
  - HALLUCINATION, VISUAL [None]
  - MUSCLE RIGIDITY [None]
  - MYALGIA [None]
  - PYREXIA [None]
  - SLEEP DISORDER [None]
  - SOLILOQUY [None]
